FAERS Safety Report 17728928 (Version 2)
Quarter: 2020Q4

REPORT INFORMATION
  Report Type: Spontaneous
  Country: IT (occurrence: IT)
  Receive Date: 20200430
  Receipt Date: 20201007
  Transmission Date: 20210113
  Serious: Yes (Life-Threatening, Other)
  Sender: FDA-Public Use
  Company Number: IT-ADIENNEP-2020AD000243

PATIENT
  Age: 25 Year
  Sex: Female

DRUGS (8)
  1. PLERIXAFOR [Suspect]
     Active Substance: PLERIXAFOR
     Indication: HAEMATOPOIETIC STEM CELL MOBILISATION
     Dates: start: 2017
  2. RITUXIMAB. [Suspect]
     Active Substance: RITUXIMAB
     Indication: CHEMOTHERAPY
     Dosage: CYCLICAL
     Dates: start: 201704, end: 201708
  3. THIOTEPA. [Suspect]
     Active Substance: THIOTEPA
     Indication: CHEMOTHERAPY
     Dosage: CYCLICAL
     Dates: start: 201704, end: 201708
  4. THIOTEPA. [Suspect]
     Active Substance: THIOTEPA
     Indication: AUTOLOGOUS HAEMATOPOIETIC STEM CELL TRANSPLANT
  5. CYTARABINE. [Suspect]
     Active Substance: CYTARABINE
     Indication: CHEMOTHERAPY
     Dosage: CYCLICAL
     Dates: start: 201704, end: 201708
  6. GRANULOCYTE COLONY STIMULATING FACTOR [Suspect]
     Active Substance: GRANULOCYTE COLONY-STIMULATING FACTOR NOS
     Indication: HAEMATOPOIETIC STEM CELL MOBILISATION
  7. CARMUSTINE. [Suspect]
     Active Substance: CARMUSTINE
     Indication: AUTOLOGOUS HAEMATOPOIETIC STEM CELL TRANSPLANT
  8. METHOTREXATE. [Suspect]
     Active Substance: METHOTREXATE
     Indication: CHEMOTHERAPY
     Dosage: CYCLICAL
     Dates: start: 201704, end: 201708

REACTIONS (12)
  - Aspergillus infection [Unknown]
  - Anaemia [Unknown]
  - Haematotoxicity [Unknown]
  - Neutropenia [Recovered/Resolved]
  - Stomatitis [Unknown]
  - Respiratory tract infection fungal [Unknown]
  - Pharyngeal inflammation [Unknown]
  - Dry eye [Unknown]
  - Pyrexia [Recovered/Resolved]
  - Vision blurred [Unknown]
  - Thrombocytopenia [Unknown]
  - Herpes simplex reactivation [Unknown]

NARRATIVE: CASE EVENT DATE: 2017
